FAERS Safety Report 12459700 (Version 2)
Quarter: 2016Q2

REPORT INFORMATION
  Report Type: Spontaneous
  Country: US (occurrence: US)
  Receive Date: 20160613
  Receipt Date: 20160624
  Transmission Date: 20160815
  Serious: Yes (Hospitalization, Disabling, Other)
  Sender: FDA-Public Use
  Company Number: US-DRREDDYS-DRL/USA/16/0080352

PATIENT
  Age: 46 Year
  Sex: Male
  Weight: 83 kg

DRUGS (2)
  1. ALLOPURINOL. [Concomitant]
     Active Substance: ALLOPURINOL
     Indication: PRODUCT USED FOR UNKNOWN INDICATION
     Route: 065
  2. CIPROFLOXACIN. [Suspect]
     Active Substance: CIPROFLOXACIN
     Indication: PROCTITIS
     Route: 048
     Dates: start: 201602

REACTIONS (6)
  - Feeding disorder [Recovered/Resolved]
  - Tendon rupture [Unknown]
  - Vomiting [Recovered/Resolved]
  - Tendonitis [Unknown]
  - Colitis [Unknown]
  - Gait disturbance [Unknown]

NARRATIVE: CASE EVENT DATE: 201604
